FAERS Safety Report 25962157 (Version 1)
Quarter: 2025Q4

REPORT INFORMATION
  Report Type: Spontaneous
  Country: US (occurrence: None)
  Receive Date: 20251024
  Receipt Date: 20251024
  Transmission Date: 20260118
  Serious: Yes (Life-Threatening)
  Sender: FDA-CTU
  Company Number: None

PATIENT
  Age: 45 Year
  Sex: Female
  Weight: 119.25 kg

DRUGS (4)
  1. DULOXETINE [Suspect]
     Active Substance: DULOXETINE
     Indication: Generalised anxiety disorder
  2. DULOXETINE [Suspect]
     Active Substance: DULOXETINE
     Indication: Depression
  3. DULOXETINE [Suspect]
     Active Substance: DULOXETINE
     Indication: Pain
  4. LEXAPRO [Suspect]
     Active Substance: ESCITALOPRAM OXALATE

REACTIONS (12)
  - Headache [None]
  - Nausea [None]
  - Visual impairment [None]
  - Rash vesicular [None]
  - Dizziness [None]
  - Hypertension [None]
  - Tachycardia [None]
  - Lethargy [None]
  - Photophobia [None]
  - Abdominal pain lower [None]
  - Electrocardiogram T wave abnormal [None]
  - Constipation [None]

NARRATIVE: CASE EVENT DATE: 20250929
